FAERS Safety Report 20982028 (Version 1)
Quarter: 2022Q2

REPORT INFORMATION
  Report Type: Spontaneous
  Country: CA (occurrence: CA)
  Receive Date: 20220620
  Receipt Date: 20220620
  Transmission Date: 20220721
  Serious: Yes (Other)
  Sender: FDA-Public Use
  Company Number: CA-TAKEDA-2022TUS039618

PATIENT
  Age: 60 Year
  Sex: Female

DRUGS (2)
  1. HUMAN IMMUNOGLOBULIN G [Suspect]
     Active Substance: HUMAN IMMUNOGLOBULIN G
     Indication: Secondary immunodeficiency
     Route: 058
  2. HUMAN C1-ESTERASE INHIBITOR [Concomitant]
     Active Substance: HUMAN C1-ESTERASE INHIBITOR
     Route: 042

REACTIONS (3)
  - Anaphylactic reaction [Recovered/Resolved]
  - Angioedema [Recovered/Resolved]
  - Medication error [Recovered/Resolved]
